APPROVED DRUG PRODUCT: METARAMINOL BITARTRATE
Active Ingredient: METARAMINOL BITARTRATE
Strength: EQ 10MG BASE/ML
Dosage Form/Route: INJECTABLE;INJECTION
Application: A211304 | Product #001
Applicant: AZURITY PHARMACEUTICALS INC
Approved: Aug 24, 2021 | RLD: No | RS: No | Type: RX